FAERS Safety Report 23702560 (Version 1)
Quarter: 2024Q2

REPORT INFORMATION
  Report Type: Spontaneous
  Country: US (occurrence: US)
  Receive Date: 20240403
  Receipt Date: 20240403
  Transmission Date: 20240716
  Serious: Yes (Life-Threatening, Hospitalization)
  Sender: FDA-Public Use
  Company Number: US-MYLANLABS-2024M1029507

PATIENT
  Age: 13 Year
  Sex: Male

DRUGS (5)
  1. ALBUTEROL [Suspect]
     Active Substance: ALBUTEROL
     Indication: Hyperkalaemia
     Dosage: UNK
     Route: 065
  2. CALCIUM GLUCONATE [Suspect]
     Active Substance: CALCIUM GLUCONATE
     Indication: Hyperkalaemia
     Dosage: UNK
     Route: 065
  3. INSULIN NOS [Suspect]
     Active Substance: INSULIN NOS
     Indication: Hyperkalaemia
     Dosage: UNK
     Route: 065
  4. DEXTROSE [Suspect]
     Active Substance: DEXTROSE\DEXTROSE MONOHYDRATE
     Indication: Hyperkalaemia
     Dosage: UNK
     Route: 065
  5. SODIUM BICARBONATE [Suspect]
     Active Substance: SODIUM BICARBONATE
     Indication: Hyperkalaemia
     Dosage: UNK
     Route: 065

REACTIONS (2)
  - Drug ineffective for unapproved indication [Unknown]
  - Off label use [Unknown]
